FAERS Safety Report 10626489 (Version 2)
Quarter: 2015Q1

REPORT INFORMATION
  Report Type: Spontaneous
  Country: BR (occurrence: BR)
  Receive Date: 20141204
  Receipt Date: 20150102
  Transmission Date: 20150720
  Serious: Yes (Other)
  Sender: FDA-Public Use
  Company Number: PHHY2014BR158646

PATIENT
  Age: 62 Year
  Sex: Male

DRUGS (1)
  1. DIOVAN AMLO FIX [Suspect]
     Active Substance: AMLODIPINE\VALSARTAN
     Indication: HYPERTENSION
     Dosage: 1 DF, QD
     Route: 048
     Dates: start: 201404, end: 201405

REACTIONS (5)
  - Drug prescribing error [Unknown]
  - Blood pressure inadequately controlled [Recovered/Resolved]
  - Chest pain [Unknown]
  - Aortic dilatation [Unknown]
  - Cardiac disorder [Unknown]
